FAERS Safety Report 8536282-4 (Version None)
Quarter: 2012Q3

REPORT INFORMATION
  Report Type: 
  Country: None (occurrence: None)
  Receive Date: 20120725
  Receipt Date: 20120718
  Transmission Date: 20120928
  Serious: Yes (Other)
  Sender: FDA-Public Use
  Company Number: US-JNJFOC-20120709522

PATIENT
  Age: 77 Year
  Sex: Female

DRUGS (1)
  1. NUCYNTA [Suspect]
     Indication: PRODUCT USED FOR UNKNOWN INDICATION
     Dosage: 50MG 1-2 TABLETS EVERY 4-6 HOURS
     Route: 048
     Dates: start: 20120701, end: 20120701

REACTIONS (2)
  - URINARY RETENTION [None]
  - DYSURIA [None]
